FAERS Safety Report 13839876 (Version 1)
Quarter: 2017Q3

REPORT INFORMATION
  Report Type: Spontaneous
  Country: US (occurrence: US)
  Receive Date: 20170805
  Receipt Date: 20170805
  Transmission Date: 20171127
  Serious: No
  Sender: FDA-Public Use
  Company Number: None

PATIENT
  Age: 69 Year
  Sex: Female

DRUGS (17)
  1. MONTELUKAST [Concomitant]
     Active Substance: MONTELUKAST SODIUM
  2. VERAPAMIL [Concomitant]
     Active Substance: VERAPAMIL HYDROCHLORIDE
  3. ATORVASTATIN [Concomitant]
     Active Substance: ATORVASTATIN
  4. LEVETIRACETAM. [Concomitant]
     Active Substance: LEVETIRACETAM
  5. OMEPRAZOLE. [Concomitant]
     Active Substance: OMEPRAZOLE
  6. WARFARIN [Suspect]
     Active Substance: WARFARIN
     Indication: ATRIAL FIBRILLATION
     Route: 048
     Dates: start: 20150304, end: 20170125
  7. BACLOFEN. [Concomitant]
     Active Substance: BACLOFEN
  8. DIPHENHYDRAMINE. [Concomitant]
     Active Substance: DIPHENHYDRAMINE
  9. VITAMIN D [Concomitant]
     Active Substance: CHOLECALCIFEROL
  10. LOSARTAN. [Concomitant]
     Active Substance: LOSARTAN
  11. PHENOBARBITAL. [Concomitant]
     Active Substance: PHENOBARBITAL
  12. METFORMIN [Concomitant]
     Active Substance: METFORMIN HYDROCHLORIDE
  13. ACETAMINOPHEN. [Concomitant]
     Active Substance: ACETAMINOPHEN
  14. HYDROCHLOROTHIAZIDE. [Concomitant]
     Active Substance: HYDROCHLOROTHIAZIDE
  15. METOPROLOL SUCCINATE. [Concomitant]
     Active Substance: METOPROLOL SUCCINATE
  16. CALCIUM + VITAMIN D [Concomitant]
     Active Substance: CALCIUM\VITAMIN D
  17. INSULIN [Concomitant]
     Active Substance: INSULIN NOS

REACTIONS (8)
  - Vomiting [None]
  - Anuria [None]
  - Lethargy [None]
  - Hypophagia [None]
  - Dehydration [None]
  - Dysstasia [None]
  - Tachycardia [None]
  - International normalised ratio increased [None]

NARRATIVE: CASE EVENT DATE: 20170110
